FAERS Safety Report 16697311 (Version 1)
Quarter: 2019Q3

REPORT INFORMATION
  Report Type: Spontaneous
  Country: US (occurrence: US)
  Receive Date: 20190813
  Receipt Date: 20190813
  Transmission Date: 20191004
  Serious: No
  Sender: FDA-Public Use
  Company Number: US-PFIZER INC-2019343312

PATIENT
  Age: 57 Year
  Sex: Male
  Weight: 104.31 kg

DRUGS (10)
  1. LEVOTHYROXINE. [Concomitant]
     Active Substance: LEVOTHYROXINE
     Indication: THYROID DISORDER
     Dosage: 50 UG, DAILY (ONE TABLET PER DAY)
  2. NICOTROL [Suspect]
     Active Substance: NICOTINE
     Dosage: 4 MG DELIVERED 10 MG CARTRIDGE DAILY UNDER 8 OR 6
  3. HYDROCODONE [Concomitant]
     Active Substance: HYDROCODONE
     Indication: ARTHRITIS
     Dosage: UNK
  4. LOSARTAN. [Concomitant]
     Active Substance: LOSARTAN
     Indication: BLOOD PRESSURE ABNORMAL
     Dosage: 100 MG, DAILY (ONE TABLET PER DAY)
     Dates: start: 2007
  5. OXYCODONE AND ACETAMINOPHEN [Concomitant]
     Active Substance: ACETAMINOPHEN\OXYCODONE HYDROCHLORIDE
     Indication: ARTHRITIS
     Dosage: 5 DF, DAILY (5 A DAY)
     Dates: start: 201808
  6. SIMVASTATIN. [Concomitant]
     Active Substance: SIMVASTATIN
     Indication: BLOOD CHOLESTEROL INCREASED
     Dosage: 40 MG, 1X/DAY
     Dates: start: 200705
  7. NICOTROL [Suspect]
     Active Substance: NICOTINE
     Indication: SMOKING CESSATION THERAPY
     Dosage: UNK
     Dates: start: 2009
  8. DIVALPROEX SODIUM. [Concomitant]
     Active Substance: DIVALPROEX SODIUM
     Indication: PROPHYLAXIS
     Dosage: 250 MG, DAILY (250 MG TABLET THREE PER DAY)
     Dates: start: 2015
  9. CELECOXIB. [Concomitant]
     Active Substance: CELECOXIB
     Indication: ARTHRITIS
     Dosage: 200 MG, DAILY (2 PER DAY)
     Dates: start: 2015
  10. DULOXETINE HYDROCHLORIDE. [Concomitant]
     Active Substance: DULOXETINE HYDROCHLORIDE
     Indication: BRAIN INJURY
     Dosage: 60 MG, DAILY (ONE PER DAY)

REACTIONS (3)
  - Memory impairment [Unknown]
  - Expired product administered [Unknown]
  - Underdose [Unknown]
